FAERS Safety Report 7681546-X (Version None)
Quarter: 2011Q3

REPORT INFORMATION
  Report Type: 
  Country: None (occurrence: None)
  Receive Date: 20110812
  Receipt Date: 20110808
  Transmission Date: 20111222
  Serious: Yes (Hospitalization)
  Sender: FDA-Public Use
  Company Number: PHHY2011US35717

PATIENT
  Sex: Male

DRUGS (2)
  1. EXJADE [Suspect]
     Indication: NEOPLASM
     Dosage: 1500 MG, QD
     Route: 048
  2. REVLIMID [Suspect]
     Dosage: UNK

REACTIONS (4)
  - LEUKAEMIA [None]
  - RASH [None]
  - PRURITUS [None]
  - DRY SKIN [None]
